FAERS Safety Report 22105506 (Version 3)
Quarter: 2023Q2

REPORT INFORMATION
  Report Type: Report from Study
  Country: KR (occurrence: KR)
  Receive Date: 20230317
  Receipt Date: 20230527
  Transmission Date: 20230721
  Serious: Yes (Hospitalization, Other)
  Sender: FDA-Public Use
  Company Number: KR-CELLTRION INC.-2022KR018660

PATIENT

DRUGS (7)
  1. HERZUMA [Suspect]
     Active Substance: TRASTUZUMAB-PKRB
     Indication: Breast cancer
     Dosage: UNK
     Route: 042
     Dates: start: 20211109, end: 20220805
  2. HERZUMA [Suspect]
     Active Substance: TRASTUZUMAB-PKRB
     Dosage: UNK
     Route: 042
     Dates: end: 20230303
  3. RIBOCICLIB [Suspect]
     Active Substance: RIBOCICLIB
     Indication: Breast cancer
     Dosage: 3 TABS PER DAY, 21 DAYS
     Route: 048
     Dates: start: 20211109, end: 20220805
  4. RIBOCICLIB [Suspect]
     Active Substance: RIBOCICLIB
     Dosage: UNK, CYCLIC (CYCLE 17)
     Route: 048
     Dates: end: 20230303
  5. ALDACTONE [Concomitant]
     Active Substance: SPIRONOLACTONE
     Indication: Hypertension
     Dosage: 25 MILLIGRAM (1 TAB D)
     Route: 048
     Dates: start: 2016
  6. NORVASC [Concomitant]
     Active Substance: AMLODIPINE BESYLATE
     Indication: Hypertension
     Dosage: 6.944 MILLIGRAM (1 TAB D)
     Route: 048
     Dates: start: 2016
  7. DENOSUMAB [Concomitant]
     Active Substance: DENOSUMAB
     Indication: Metastases to bone
     Dosage: 120 MILLIGRAM (1 VIAL, EVERY 4 WEEKS)
     Route: 058
     Dates: start: 20211109

REACTIONS (3)
  - Lymphadenitis [Recovering/Resolving]
  - Accidental overdose [Unknown]
  - Product communication issue [Unknown]

NARRATIVE: CASE EVENT DATE: 20221026
